FAERS Safety Report 19999512 (Version 2)
Quarter: 2022Q1

REPORT INFORMATION
  Report Type: Report from Study
  Country: US (occurrence: US)
  Receive Date: 20211026
  Receipt Date: 20220309
  Transmission Date: 20220423
  Serious: Yes (Hospitalization, Other)
  Sender: FDA-Public Use
  Company Number: US-NOVARTISPH-NVSC2021US243569

PATIENT
  Sex: Female
  Weight: 79.37 kg

DRUGS (3)
  1. TREPROSTINIL [Suspect]
     Active Substance: TREPROSTINIL
     Indication: Pulmonary arterial hypertension
     Dosage: 86 NG/KG/MIN, CONT
     Route: 042
     Dates: start: 20210816
  2. TREPROSTINIL [Suspect]
     Active Substance: TREPROSTINIL
     Dosage: UNK, CONT (86 NG/KG/MIN)
     Route: 042
  3. LETAIRIS [Concomitant]
     Active Substance: AMBRISENTAN
     Indication: Product used for unknown indication
     Dosage: UNK
     Route: 065

REACTIONS (7)
  - Pneumonia [Unknown]
  - Laziness [Unknown]
  - Memory impairment [Unknown]
  - Irritability [Unknown]
  - Dyspnoea [Unknown]
  - Device alarm issue [Unknown]
  - Product use issue [Unknown]
